FAERS Safety Report 4457925-0 (Version None)
Quarter: 2004Q3

REPORT INFORMATION
  Report Type: 
  Country: None (occurrence: None)
  Receive Date: 20040922
  Receipt Date: 20040913
  Transmission Date: 20050211
  Serious: Yes (Death, Hospitalization)
  Sender: FDA-Public Use
  Company Number: 04P-167-0266004-00

PATIENT
  Sex: 0

DRUGS (4)
  1. HUMIRA [Suspect]
     Dosage: 40 MG, 2 IN 1 WK, SUBCUTANEOUS
     Route: 058
     Dates: start: 20040305
  2. PREDNISOLONE [Concomitant]
  3. CLARITHROMYCIN [Concomitant]
  4. ALENDRONATE SODIUM [Concomitant]

REACTIONS (3)
  - DEPRESSED LEVEL OF CONSCIOUSNESS [None]
  - LUNG CONSOLIDATION [None]
  - PNEUMONIA [None]
